FAERS Safety Report 7071524-6 (Version None)
Quarter: 2010Q4

REPORT INFORMATION
  Report Type: 
  Country: None (occurrence: None)
  Receive Date: 20101029
  Receipt Date: 20090917
  Transmission Date: 20110411
  Serious: No
  Sender: FDA-Public Use
  Company Number: A0807847A

PATIENT
  Age: 75 Year
  Sex: Male

DRUGS (4)
  1. ADVAIR DISKUS 100/50 [Suspect]
     Indication: BRONCHITIS
     Route: 055
     Dates: start: 20090916
  2. BENZONATATE [Concomitant]
  3. AVELOX [Concomitant]
  4. ASPIRIN [Concomitant]

REACTIONS (1)
  - GLOSSODYNIA [None]
